FAERS Safety Report 7634688-9 (Version None)
Quarter: 2011Q3

REPORT INFORMATION
  Report Type: 
  Country: None (occurrence: None)
  Receive Date: 20110725
  Receipt Date: 20091122
  Transmission Date: 20111222
  Serious: Yes (Death, Hospitalization, Other)
  Sender: FDA-Public Use
  Company Number: US-BAYER-201038582NA

PATIENT
  Age: 73 Year
  Sex: Male
  Weight: 80.726 kg

DRUGS (17)
  1. LASIX [Concomitant]
     Dosage: 20 MG, QD
     Route: 048
     Dates: start: 20040101
  2. COUMADIN [Concomitant]
     Dosage: 5 MG, QD
     Route: 048
     Dates: start: 20040101
  3. AMIODARONE HCL [Concomitant]
     Indication: VENTRICULAR TACHYCARDIA
     Dosage: UNK
     Route: 042
     Dates: start: 20070411
  4. EPINEPHRINE [Concomitant]
     Dosage: 0.08 MCG/KG/MIN
     Route: 042
     Dates: start: 20070411
  5. PROTAMINE SULFATE [Concomitant]
     Dosage: UNK
     Route: 042
     Dates: start: 20070411
  6. TRASYLOL [Suspect]
     Indication: TRICUSPID VALVE REPAIR
  7. NORVASC [Concomitant]
     Dosage: 10 MG, QD
     Route: 048
  8. LIDOCAINE [Concomitant]
     Indication: VENTRICULAR TACHYCARDIA
     Dosage: UNK
     Route: 042
     Dates: start: 20070411
  9. TRASYLOL [Suspect]
     Indication: COX-MAZE PROCEDURE
  10. LISINOPRIL [Concomitant]
     Dosage: 15 MG, QD
     Route: 048
  11. ACETYLSALICYLIC ACID SRT [Concomitant]
     Dosage: 81 MG, QD
     Route: 048
  12. SIMVASTATIN [Concomitant]
     Dosage: 40 MG, QD
     Route: 048
  13. DOPAMINE HCL [Concomitant]
     Dosage: UNK
     Route: 042
     Dates: start: 20070411
  14. TRASYLOL [Suspect]
     Indication: CORONARY ARTERY BYPASS
  15. TRASYLOL [Suspect]
     Indication: MITRAL VALVE REPAIR
  16. TRASYLOL [Suspect]
     Indication: AORTIC VALVE REPLACEMENT
     Dosage: UNK
     Route: 042
     Dates: start: 20070411
  17. LEVOPHED [Concomitant]
     Dosage: UNK
     Route: 042
     Dates: start: 20070411

REACTIONS (12)
  - RENAL INJURY [None]
  - INJURY [None]
  - PAIN [None]
  - UNEVALUABLE EVENT [None]
  - STRESS [None]
  - RENAL IMPAIRMENT [None]
  - FEAR [None]
  - RENAL FAILURE [None]
  - EMOTIONAL DISTRESS [None]
  - DEATH [None]
  - ANXIETY [None]
  - MULTI-ORGAN FAILURE [None]
